FAERS Safety Report 19572857 (Version 1)
Quarter: 2021Q3

REPORT INFORMATION
  Report Type: Spontaneous
  Country: NL (occurrence: NL)
  Receive Date: 20210716
  Receipt Date: 20210716
  Transmission Date: 20211014
  Serious: Yes (Death)
  Sender: FDA-Public Use
  Company Number: NL-TEVA-2021-NL-1932616

PATIENT
  Age: 70 Year
  Sex: Male
  Weight: 97 kg

DRUGS (2)
  1. DOCETAXEL INFOPL CONC 20MG/ML / BRAND NAME NOT SPECIFIED [Suspect]
     Active Substance: DOCETAXEL
     Indication: PROSTATE CANCER METASTATIC
     Dosage: 75 MG/M  TOTAL 160 MG,THERAPY END DATE ASKU
     Dates: start: 20210624
  2. DEXAMETHASON / BRAND NAME NOT SPECIFIED [Concomitant]
     Active Substance: DEXAMETHASONE
     Dosage: THERAPY START DATE ASKU, THERAPY END DATE ASKU, 8 MG

REACTIONS (1)
  - Disseminated intravascular coagulation [Fatal]

NARRATIVE: CASE EVENT DATE: 20210627
